FAERS Safety Report 15811198 (Version 2)
Quarter: 2019Q1

REPORT INFORMATION
  Report Type: Spontaneous
  Country: US (occurrence: US)
  Receive Date: 20190111
  Receipt Date: 20190214
  Transmission Date: 20190417
  Serious: Yes (Life-Threatening, Hospitalization, Other)
  Sender: FDA-Public Use
  Company Number: US-AUROBINDO-AUR-APL-2019-000201

PATIENT

DRUGS (14)
  1. CLOZAPINE. [Suspect]
     Active Substance: CLOZAPINE
     Indication: BIPOLAR DISORDER
     Dosage: 50 MILLIGRAM, ONCE A DAY IN THE EVENING
     Route: 065
     Dates: start: 20171027, end: 20171029
  2. CLOZAPINE. [Suspect]
     Active Substance: CLOZAPINE
     Dosage: 175 MILLIGRAM, ONCE A DAY IN THE EVENING
     Route: 065
     Dates: start: 20171105, end: 20171105
  3. CLOZAPINE. [Suspect]
     Active Substance: CLOZAPINE
     Indication: SCHIZOPHRENIA
     Dosage: 25 MILLIGRAM, ONCE A DAY IN THE EVENING
     Route: 065
     Dates: start: 20171026, end: 20171026
  4. CLOZAPINE. [Suspect]
     Active Substance: CLOZAPINE
     Dosage: 75 MILLIGRAM, ONCE A DAY IN THE EVENING
     Route: 065
     Dates: start: 20171030, end: 20171031
  5. CLOZAPINE. [Suspect]
     Active Substance: CLOZAPINE
     Dosage: 100 MILLIGRAM, ONCE A DAY IN THE EVENING
     Route: 065
     Dates: start: 20171101, end: 20171102
  6. CLOZAPINE. [Suspect]
     Active Substance: CLOZAPINE
     Dosage: 200 MILLIGRAM, ONCE A DAY IN THE EVENING
     Route: 065
     Dates: start: 20171106, end: 20171106
  7. CLOZAPINE. [Suspect]
     Active Substance: CLOZAPINE
     Dosage: 225 MILLIGRAM, ONCE A DAY IN THE EVENING
     Route: 065
     Dates: start: 20171107, end: 20171107
  8. CLOZAPINE. [Suspect]
     Active Substance: CLOZAPINE
     Dosage: 125 MILLIGRAM, ONCE A DAY, IN THE EVENING
     Route: 065
     Dates: start: 20171103, end: 20171103
  9. CLOZAPINE. [Suspect]
     Active Substance: CLOZAPINE
     Dosage: 150 MILLIGRAM, ONCE A DAY, IN THE EVENING
     Route: 065
     Dates: start: 20171104, end: 20171104
  10. CLOZAPINE. [Suspect]
     Active Substance: CLOZAPINE
     Dosage: 250 MILLIGRAM, ONCE A DAY IN THE EVENING
     Route: 065
     Dates: start: 20171108, end: 20171108
  11. HALOPERIDOL. [Concomitant]
     Active Substance: HALOPERIDOL
     Indication: SCHIZOPHRENIA
     Dosage: HALOPERIDOL DEPOT
     Route: 065
  12. HALOPERIDOL. [Concomitant]
     Active Substance: HALOPERIDOL
     Indication: BIPOLAR DISORDER
  13. CLOZAPINE. [Suspect]
     Active Substance: CLOZAPINE
     Dosage: 275 MILLIGRAM, ONCE A DAY IN THE EVENING
     Route: 065
     Dates: start: 20171109, end: 20171109
  14. CLOZAPINE. [Suspect]
     Active Substance: CLOZAPINE
     Dosage: 300 MILLIGRAM, ONCE A DAY IN THE EVENING
     Route: 065
     Dates: start: 20171110, end: 20171113

REACTIONS (9)
  - Cardiac failure acute [Recovering/Resolving]
  - Cardiotoxicity [Recovering/Resolving]
  - Toxicity to various agents [Recovering/Resolving]
  - Bundle branch block right [Recovering/Resolving]
  - Myocarditis [Recovering/Resolving]
  - Atrial fibrillation [Recovering/Resolving]
  - Gastrointestinal haemorrhage [Recovering/Resolving]
  - Acute kidney injury [Recovered/Resolved]
  - Electrocardiogram ST segment elevation [Recovering/Resolving]

NARRATIVE: CASE EVENT DATE: 20171112
